FAERS Safety Report 5203574-6 (Version None)
Quarter: 2007Q1

REPORT INFORMATION
  Report Type: 
  Country: None (occurrence: None)
  Receive Date: 20070110
  Receipt Date: 20070104
  Transmission Date: 20070707
  Serious: Yes (Disabling)
  Sender: FDA-Public Use
  Company Number: GB-GLAXOSMITHKLINE-B0453363A

PATIENT
  Age: 42 Year
  Sex: Female

DRUGS (8)
  1. LITHIUM CARBONATE [Suspect]
     Route: 048
     Dates: start: 20060801
  2. AMLODIPINE [Concomitant]
     Indication: HYPERTENSION
  3. CO-CODAMOL [Concomitant]
     Indication: PAIN
  4. DOXAZOSIN MESYLATE [Concomitant]
     Indication: HYPERTENSION
  5. FRUSEMIDE [Concomitant]
  6. RALOXIFENE HCL [Concomitant]
  7. RAMIPRIL [Concomitant]
  8. REBOXETINE [Concomitant]
     Indication: DEPRESSION

REACTIONS (4)
  - DRY SKIN [None]
  - FEELING ABNORMAL [None]
  - POLYURIA [None]
  - THIRST [None]
